FAERS Safety Report 8773445 (Version 3)
Quarter: 2013Q3

REPORT INFORMATION
  Report Type: Spontaneous
  Country: US (occurrence: US)
  Receive Date: 20120907
  Receipt Date: 20130917
  Transmission Date: 20140515
  Serious: Yes (Other)
  Sender: FDA-Public Use
  Company Number: US-ASTRAZENECA-2012SE65756

PATIENT
  Age: 51 Year
  Sex: Female
  Weight: 74.8 kg

DRUGS (7)
  1. NEXIUM [Suspect]
     Indication: GASTROOESOPHAGEAL REFLUX DISEASE
     Route: 048
     Dates: start: 2001, end: 2008
  2. NEXIUM [Suspect]
     Indication: GASTROOESOPHAGEAL REFLUX DISEASE
     Route: 048
     Dates: start: 2008, end: 201307
  3. TRANZADONE [Concomitant]
     Indication: SLEEP DISORDER
     Route: 048
  4. KLONIPIN [Concomitant]
     Indication: DEPRESSION
     Route: 048
  5. TRIMETHOPRIM [Concomitant]
     Indication: INFECTION
     Dosage: DAILY
     Route: 048
  6. ELAVIL [Concomitant]
     Indication: DEPRESSION
     Route: 048
     Dates: start: 2010
  7. SOMETHING FOR CHOLESTEROL [Concomitant]
     Indication: BLOOD CHOLESTEROL ABNORMAL
     Route: 048

REACTIONS (17)
  - Back disorder [Unknown]
  - Gastric disorder [Unknown]
  - Gastrooesophageal reflux disease [Unknown]
  - Oesophageal disorder [Unknown]
  - Impaired gastric emptying [Unknown]
  - Aphagia [Unknown]
  - Dysphagia [Unknown]
  - Irritable bowel syndrome [Unknown]
  - Cystitis interstitial [Unknown]
  - Chronic obstructive pulmonary disease [Unknown]
  - Intervertebral disc degeneration [Unknown]
  - Muscle spasms [Unknown]
  - Fall [Unknown]
  - Activities of daily living impaired [Unknown]
  - Dysgeusia [Unknown]
  - Off label use [Unknown]
  - Drug dose omission [Unknown]
